FAERS Safety Report 9412086 (Version 1)
Quarter: 2013Q3

REPORT INFORMATION
  Report Type: Report from Study
  Country: JP (occurrence: JP)
  Receive Date: 20130722
  Receipt Date: 20130722
  Transmission Date: 20140515
  Serious: Yes (Death, Hospitalization)
  Sender: FDA-Public Use
  Company Number: JP-AMGEN-JPNCT2013050859

PATIENT
  Age: 93 Year
  Sex: Female
  Weight: 40 kg

DRUGS (25)
  1. DARBEPOETIN ALFA [Suspect]
     Indication: NEPHROGENIC ANAEMIA
     Dosage: 60 MUG, QD
     Route: 058
     Dates: start: 20110317, end: 20110317
  2. DARBEPOETIN ALFA [Suspect]
     Dosage: 60 MUG, Q4WK
     Route: 058
     Dates: start: 20110519, end: 20110811
  3. DARBEPOETIN ALFA [Suspect]
     Dosage: 60 MUG, Q4WK
     Route: 058
     Dates: start: 20110915, end: 20111110
  4. DARBEPOETIN ALFA [Suspect]
     Dosage: 60 MUG, QD
     Route: 058
     Dates: start: 20111202, end: 20111202
  5. DARBEPOETIN ALFA [Suspect]
     Dosage: 60 MUG, QD
     Route: 058
     Dates: start: 20111228, end: 20111228
  6. DARBEPOETIN ALFA [Suspect]
     Dosage: 60 MUG, QD
     Route: 058
     Dates: start: 20120124, end: 20120124
  7. DARBEPOETIN ALFA [Suspect]
     Dosage: 60 MUG, QD
     Route: 058
     Dates: start: 20120209, end: 20120209
  8. DARBEPOETIN ALFA [Suspect]
     Dosage: 60 MUG, QD
     Route: 058
     Dates: start: 20120308, end: 20120308
  9. DARBEPOETIN ALFA [Suspect]
     Dosage: 60 MUG, QD
     Route: 058
     Dates: start: 20120329, end: 20120329
  10. DARBEPOETIN ALFA [Suspect]
     Dosage: 60 MUG, QD
     Route: 058
     Dates: start: 20120501, end: 20120501
  11. DARBEPOETIN ALFA [Suspect]
     Dosage: 60 MUG, QD
     Route: 058
     Dates: start: 20120621, end: 20120621
  12. DARBEPOETIN ALFA [Suspect]
     Dosage: 60 MUG, QD
     Route: 058
     Dates: start: 20120802, end: 20120802
  13. DARBEPOETIN ALFA [Suspect]
     Dosage: 60 MUG, QD
     Route: 058
     Dates: start: 20120914, end: 20120914
  14. DARBEPOETIN ALFA [Suspect]
     Dosage: 60 MUG, QD
     Route: 058
     Dates: start: 20121015, end: 20121015
  15. FERROMIA [Concomitant]
     Dosage: UNK
     Route: 048
  16. LASIX [Concomitant]
     Dosage: UNK
     Route: 048
  17. ALLELOCK [Concomitant]
     Dosage: UNK
     Route: 048
  18. ATELEC [Concomitant]
     Dosage: UNK
     Route: 048
  19. OMEPRAZON [Concomitant]
     Dosage: UNK
     Route: 048
  20. ARGAMATE [Concomitant]
     Dosage: UNK
     Route: 048
  21. KAMAG G [Concomitant]
     Dosage: UNK
     Route: 048
  22. FRANDOL [Concomitant]
     Dosage: UNK
     Route: 062
  23. KREMEZIN [Concomitant]
     Indication: GLOMERULONEPHRITIS CHRONIC
     Dosage: UNK
     Route: 048
  24. WARFARIN [Concomitant]
     Dosage: UNK
     Route: 048
  25. WARKMIN [Concomitant]
     Dosage: UNK
     Route: 048

REACTIONS (2)
  - Death [Fatal]
  - Cardiac failure [Unknown]
